FAERS Safety Report 10302600 (Version 1)
Quarter: 2014Q3

REPORT INFORMATION
  Report Type: Spontaneous
  Country: US (occurrence: US)
  Receive Date: 20140714
  Receipt Date: 20140714
  Transmission Date: 20150326
  Serious: No
  Sender: FDA-Public Use
  Company Number: US-BAYER-2014-102574

PATIENT
  Age: 20 Year
  Sex: Male
  Weight: 82 kg

DRUGS (1)
  1. ALEVE [Suspect]
     Active Substance: NAPROXEN SODIUM
     Indication: ANALGESIC THERAPY
     Dosage: 5 DF, ONCE
     Route: 048
     Dates: start: 20140630, end: 20140630

REACTIONS (6)
  - Pain [Unknown]
  - Extra dose administered [Unknown]
  - Headache [Not Recovered/Not Resolved]
  - Abdominal pain [Unknown]
  - Chest discomfort [Not Recovered/Not Resolved]
  - Abdominal pain upper [Not Recovered/Not Resolved]

NARRATIVE: CASE EVENT DATE: 20140630
